FAERS Safety Report 25227890 (Version 1)
Quarter: 2025Q2

REPORT INFORMATION
  Report Type: Spontaneous
  Country: QA (occurrence: QA)
  Receive Date: 20250423
  Receipt Date: 20250423
  Transmission Date: 20250717
  Serious: Yes (Other)
  Sender: JAZZ
  Company Number: QA-JAZZ PHARMACEUTICALS-2025-QA-009977

PATIENT
  Sex: Male

DRUGS (1)
  1. VYXEOS [Suspect]
     Active Substance: CYTARABINE\DAUNORUBICIN
     Indication: Acute myeloid leukaemia
     Route: 042
     Dates: start: 20250227, end: 20250416

REACTIONS (2)
  - Pancytopenia [Unknown]
  - Skin toxicity [Unknown]
